FAERS Safety Report 4588582-0 (Version None)
Quarter: 2005Q1

REPORT INFORMATION
  Report Type: 
  Country: None (occurrence: None)
  Receive Date: 20050216
  Receipt Date: 20050216
  Transmission Date: 20050727
  Serious: Yes (Other)
  Sender: FDA-Public Use
  Company Number: None

PATIENT
  Age: 64 Year
  Sex: Male
  Weight: 64.4108 kg

DRUGS (8)
  1. TAXOTERE [Suspect]
     Indication: PROSTATE CANCER METASTATIC
     Dosage: 25 MG/M2 DAYS 1,8,15
     Dates: start: 20040922
  2. DOXIL [Suspect]
     Dosage: 25 MG/M2 DAYS 1,8,15
     Dates: start: 20040922
  3. ZOLADEX [Concomitant]
  4. CASODEX [Concomitant]
  5. VIAGRA [Concomitant]
  6. EPOGEN [Concomitant]
  7. ZOLADEX [Concomitant]
  8. ZOMETA [Concomitant]

REACTIONS (1)
  - DEATH [None]
